FAERS Safety Report 24873263 (Version 1)
Quarter: 2025Q1

REPORT INFORMATION
  Report Type: Spontaneous
  Country: FR (occurrence: FR)
  Receive Date: 20250122
  Receipt Date: 20250122
  Transmission Date: 20250409
  Serious: Yes (Other)
  Sender: CHEPLAPHARM
  Company Number: FR-CHEPLA-2025000902

PATIENT
  Age: 79 Year
  Sex: Female

DRUGS (13)
  1. HYDROXYUREA [Suspect]
     Active Substance: HYDROXYUREA
     Dates: start: 200507
  2. HYDROXYUREA [Suspect]
     Active Substance: HYDROXYUREA
     Dosage: TWO TABLETS PER DAY ?DAILY DOSE: 2 DOSAGE FORM
     Dates: start: 20220801
  3. KARDEGIC [Suspect]
     Active Substance: ASPIRIN DL-LYSINE
  4. ELIQUIS [Suspect]
     Active Substance: APIXABAN
  5. SINEMET [Suspect]
     Active Substance: CARBIDOPA\LEVODOPA
  6. CLOZAPINE [Suspect]
     Active Substance: CLOZAPINE
  7. CITALOPRAM [Suspect]
     Active Substance: CITALOPRAM
  8. ANAGRELIDE HYDROCHLORIDE [Suspect]
     Active Substance: ANAGRELIDE HYDROCHLORIDE
  9. AMOXICILLIN [Suspect]
     Active Substance: AMOXICILLIN
     Dates: start: 20220823, end: 20220830
  10. ECONAZOLE [Suspect]
     Active Substance: ECONAZOLE
  11. FUROSEMIDE [Suspect]
     Active Substance: FUROSEMIDE
     Dosage: DAILY DOSE: 120 MILLIGRAM
  12. FUROSEMIDE [Suspect]
     Active Substance: FUROSEMIDE
     Dosage: DAILY DOSE: 40 MILLIGRAM
  13. PEGASYS [Concomitant]
     Active Substance: PEGINTERFERON ALFA-2A
     Dosage: 90 MICRO G ONCE A WEEK

REACTIONS (8)
  - Parkinson^s disease [Unknown]
  - Renal failure [Unknown]
  - Pyelonephritis [Unknown]
  - Dementia [Unknown]
  - Skin ulcer [Unknown]
  - Angiodermatitis [Unknown]
  - COVID-19 [Unknown]
  - Hypertension [Unknown]

NARRATIVE: CASE EVENT DATE: 20220701
